FAERS Safety Report 13114405 (Version 6)
Quarter: 2017Q3

REPORT INFORMATION
  Report Type: Spontaneous
  Country: US (occurrence: US)
  Receive Date: 20170113
  Receipt Date: 20170919
  Transmission Date: 20171127
  Serious: No
  Sender: FDA-Public Use
  Company Number: US-PFIZER INC-2017015988

PATIENT
  Age: 61 Year
  Sex: Female
  Weight: 53.7 kg

DRUGS (6)
  1. METHOTREXATE SODIUM. [Suspect]
     Active Substance: METHOTREXATE SODIUM
     Indication: RHEUMATOID ARTHRITIS
     Dosage: 2.5 MG, UNK (2.5MG FOUR DAYS A WEEK)
     Dates: start: 201409, end: 201510
  2. PREDNISONE. [Suspect]
     Active Substance: PREDNISONE
     Dosage: UNK
  3. ALENDRONATE [Concomitant]
     Active Substance: ALENDRONATE SODIUM
     Dosage: 70 MG, UNK
  4. POTASSIUM [Concomitant]
     Active Substance: POTASSIUM
     Dosage: 80 MEQ, UNK
  5. LEVOTHYROXINE. [Concomitant]
     Active Substance: LEVOTHYROXINE
     Dosage: 75 UG, UNK
  6. SIMVASTATIN. [Concomitant]
     Active Substance: SIMVASTATIN
     Dosage: 20 MG, UNK

REACTIONS (5)
  - Renal disorder [Recovered/Resolved]
  - Drug ineffective [Recovered/Resolved]
  - Herpes virus infection [Recovered/Resolved]
  - Drug hypersensitivity [Unknown]
  - Liver disorder [Recovered/Resolved]

NARRATIVE: CASE EVENT DATE: 201411
